APPROVED DRUG PRODUCT: DRONABINOL
Active Ingredient: DRONABINOL
Strength: 5MG
Dosage Form/Route: CAPSULE;ORAL
Application: A079217 | Product #002
Applicant: HIKMA PHARMACEUTICALS USA INC
Approved: Jun 20, 2014 | RLD: No | RS: No | Type: DISCN